FAERS Safety Report 8225864-5 (Version None)
Quarter: 2012Q1

REPORT INFORMATION
  Report Type: 
  Country: None (occurrence: None)
  Receive Date: 20120321
  Receipt Date: 20120312
  Transmission Date: 20120608
  Serious: Yes (Death, Hospitalization, Other)
  Sender: FDA-Public Use
  Company Number: DE-ELI_LILLY_AND_COMPANY-DE201203004219

PATIENT
  Age: 70 Year
  Sex: Female

DRUGS (1)
  1. RALOXIFENE HYDROCHLORIDE [Suspect]
     Indication: OSTEOPOROSIS
     Dosage: UNK
     Route: 048
     Dates: start: 20030101, end: 20060101

REACTIONS (3)
  - HEPATIC NEOPLASM MALIGNANT [None]
  - THROMBOSIS [None]
  - PYREXIA [None]
